FAERS Safety Report 7592063-X (Version None)
Quarter: 2011Q2

REPORT INFORMATION
  Report Type: 
  Country: None (occurrence: None)
  Receive Date: 20110628
  Receipt Date: 20110617
  Transmission Date: 20111010
  Serious: Yes (Hospitalization, Other)
  Sender: FDA-Public Use
  Company Number: 2011SP023768

PATIENT
  Age: 60 Year
  Sex: Female

DRUGS (12)
  1. TEMODAL [Suspect]
     Indication: GLIOBLASTOMA MULTIFORME
     Dosage: 140 MG, QD
     Dates: start: 20110503
  2. AVASTIN [Concomitant]
  3. DILANTIN [Concomitant]
  4. ONDANSETRON [Concomitant]
  5. PANTOPRAZOLE [Concomitant]
  6. DEXAMETHASONE [Concomitant]
  7. BACTRIM [Concomitant]
  8. FAMCICLOVIR [Concomitant]
  9. DEXAMETHASONE [Concomitant]
  10. COLOXYL WITH SENNA [Concomitant]
  11. ZOFRAN [Concomitant]
  12. DILANTIN [Concomitant]

REACTIONS (5)
  - NEOPLASM PROGRESSION [None]
  - CONSTIPATION [None]
  - CONVULSION [None]
  - DYSARTHRIA [None]
  - MOVEMENT DISORDER [None]
